FAERS Safety Report 4417156-7 (Version None)
Quarter: 2004Q3

REPORT INFORMATION
  Report Type: 
  Country: None (occurrence: None)
  Receive Date: 20040806
  Receipt Date: 20040721
  Transmission Date: 20050211
  Serious: Yes (Death, Life-Threatening, Other)
  Sender: FDA-Public Use
  Company Number: JP-MERCK-0407USA01842

PATIENT
  Age: 35 Year
  Sex: Female

DRUGS (17)
  1. CALCITRIOL [Suspect]
     Route: 048
     Dates: start: 20030220, end: 20040526
  2. CALCIUM POLYSTYRENE SULFONATE [Concomitant]
     Route: 048
     Dates: start: 20040318, end: 20040611
  3. PRIMAXIN [Suspect]
     Indication: PNEUMONIA
     Route: 042
     Dates: start: 20040511, end: 20040521
  4. PRIMAXIN [Suspect]
     Route: 042
     Dates: start: 20040603, end: 20040605
  5. TAGAMET [Concomitant]
     Route: 065
     Dates: start: 20040601, end: 20040601
  6. LASIX [Concomitant]
     Route: 048
     Dates: start: 20020408, end: 20040526
  7. OSTEN [Concomitant]
     Route: 048
     Dates: start: 20030830, end: 20040526
  8. ZADITEN [Concomitant]
     Route: 048
     Dates: start: 20030819, end: 20040526
  9. LAFUTIDINE [Concomitant]
     Route: 048
     Dates: start: 20031204, end: 20040526
  10. LEVOFLOXACIN [Concomitant]
     Route: 048
     Dates: start: 20040511, end: 20040527
  11. MAGNESIUM OXIDE [Concomitant]
     Route: 048
     Dates: start: 20030612, end: 20040526
  12. SOLU-MEDROL [Concomitant]
     Route: 042
     Dates: start: 20040512, end: 20040514
  13. SOLU-MEDROL [Concomitant]
     Route: 042
     Dates: start: 20040528, end: 20040530
  14. SOLU-MEDROL [Concomitant]
     Route: 042
     Dates: start: 20040609, end: 20040611
  15. PREDONINE [Concomitant]
     Route: 048
     Dates: start: 20040518, end: 20040527
  16. PREDONINE [Concomitant]
     Route: 048
     Dates: start: 20040511, end: 20040518
  17. PREDONINE [Concomitant]
     Route: 048
     Dates: start: 20040529, end: 20040611

REACTIONS (7)
  - ALANINE AMINOTRANSFERASE INCREASED [None]
  - ASPARTATE AMINOTRANSFERASE INCREASED [None]
  - BLOOD LACTATE DEHYDROGENASE INCREASED [None]
  - DISSEMINATED INTRAVASCULAR COAGULATION [None]
  - MULTI-ORGAN FAILURE [None]
  - PERITONITIS [None]
  - SEPSIS [None]
